FAERS Safety Report 9850291 (Version 2)
Quarter: 2014Q1

REPORT INFORMATION
  Report Type: Spontaneous
  Country: JP (occurrence: JP)
  Receive Date: 20140128
  Receipt Date: 20140203
  Transmission Date: 20141002
  Serious: Yes (Hospitalization)
  Sender: FDA-Public Use
  Company Number: JP-GLAXOSMITHKLINE-B0963647A

PATIENT
  Age: 84 Year
  Sex: Female

DRUGS (8)
  1. VALTREX [Suspect]
     Indication: HERPES ZOSTER
     Dosage: 2G THREE TIMES PER DAY
     Route: 048
     Dates: start: 20140116, end: 20140118
  2. PLAVIX [Concomitant]
     Route: 048
  3. GASPORT-D [Concomitant]
     Dosage: 20MG PER DAY
     Route: 048
  4. AMLODIPINE [Concomitant]
     Dosage: 5MG PER DAY
     Route: 048
  5. BLOPRESS [Concomitant]
     Dosage: 12MG PER DAY
     Route: 048
  6. NIFEDIPINE CR [Concomitant]
     Dosage: 20MG PER DAY
     Route: 048
  7. AMBROXOL HYDROCHLORIDE [Concomitant]
     Dosage: 15MG THREE TIMES PER DAY
     Route: 048
  8. SENNARIDE [Concomitant]
     Dosage: 24MG PER DAY
     Route: 048

REACTIONS (4)
  - Anuria [Unknown]
  - Nausea [Recovered/Resolved]
  - Vomiting [Recovered/Resolved]
  - Decreased appetite [Recovered/Resolved]
